FAERS Safety Report 4800042-8 (Version None)
Quarter: 2005Q4

REPORT INFORMATION
  Report Type: 
  Country: None (occurrence: None)
  Receive Date: 20051017
  Receipt Date: 20051006
  Transmission Date: 20060501
  Serious: Yes (Hospitalization)
  Sender: FDA-Public Use
  Company Number: US-JNJFOC-20051002112

PATIENT
  Sex: Female

DRUGS (21)
  1. INFLIXIMAB [Suspect]
     Indication: RHEUMATOID ARTHRITIS
     Route: 042
  2. ALTACE [Concomitant]
  3. AMBIEN [Concomitant]
  4. AMTRIPTYLINE [Concomitant]
  5. CORAL CALCIUM [Concomitant]
     Dosage: 3 TABS DAILY
  6. CARAFATE [Concomitant]
  7. DARVOCET-N 100 [Concomitant]
  8. DARVOCET-N 100 [Concomitant]
     Dosage: N100
  9. FOLIC ACID [Concomitant]
  10. K-DUR 10 [Concomitant]
  11. LASIX [Concomitant]
  12. METHOTREXATE [Concomitant]
  13. OCUVIT [Concomitant]
  14. OCUVIT [Concomitant]
  15. OCUVIT [Concomitant]
  16. OXYCONTIN [Concomitant]
  17. PREDNISONE [Concomitant]
  18. PREMARIN [Concomitant]
  19. SYNTHROID [Concomitant]
  20. ASCORBIC ACID [Concomitant]
  21. ZANTAC [Concomitant]

REACTIONS (1)
  - DIVERTICULITIS [None]
